FAERS Safety Report 13247472 (Version 1)
Quarter: 2017Q1

REPORT INFORMATION
  Report Type: Spontaneous
  Country: AU (occurrence: AU)
  Receive Date: 20170217
  Receipt Date: 20170217
  Transmission Date: 20170428
  Serious: Yes (Other)
  Sender: FDA-Public Use
  Company Number: AU-ASTRAZENECA-2017SE18096

PATIENT
  Age: 62 Year
  Sex: Male

DRUGS (14)
  1. IVABRADINE [Concomitant]
     Active Substance: IVABRADINE
  2. TICAGRELOR [Suspect]
     Active Substance: TICAGRELOR
     Route: 048
  3. RAMIPRIL. [Suspect]
     Active Substance: RAMIPRIL
     Route: 048
  4. ATORVASTATIN [Concomitant]
     Active Substance: ATORVASTATIN
  5. CARVEDILOL. [Concomitant]
     Active Substance: CARVEDILOL
  6. CARVEDILOL. [Concomitant]
     Active Substance: CARVEDILOL
  7. FRUSEMIDE [Concomitant]
     Active Substance: FUROSEMIDE
  8. HYDRALAZINE [Concomitant]
     Active Substance: HYDRALAZINE HYDROCHLORIDE
  9. HYDRALAZINE [Concomitant]
     Active Substance: HYDRALAZINE HYDROCHLORIDE
  10. IVABRADINE [Concomitant]
     Active Substance: IVABRADINE
  11. IMDUR [Suspect]
     Active Substance: ISOSORBIDE MONONITRATE
     Route: 065
  12. IMDUR [Suspect]
     Active Substance: ISOSORBIDE MONONITRATE
     Route: 065
  13. FRUSEMIDE [Concomitant]
     Active Substance: FUROSEMIDE
  14. ASPIRIN. [Concomitant]
     Active Substance: ASPIRIN

REACTIONS (17)
  - Type 2 diabetes mellitus [Unknown]
  - Mitral valve incompetence [Unknown]
  - Overweight [Unknown]
  - Oedema peripheral [Unknown]
  - Myocardial infarction [Unknown]
  - Coronary artery occlusion [Unknown]
  - Weight decreased [Unknown]
  - Pulmonary hypertension [Unknown]
  - Asthenia [Unknown]
  - Ejection fraction decreased [Unknown]
  - Dyspnoea exertional [Unknown]
  - Hypertension [Unknown]
  - Pulmonary oedema [Unknown]
  - Dizziness [Unknown]
  - Disturbance in attention [Unknown]
  - Iron deficiency [Unknown]
  - Fatigue [Unknown]
